FAERS Safety Report 7944232-4 (Version None)
Quarter: 2011Q4

REPORT INFORMATION
  Report Type: 
  Country: None (occurrence: None)
  Receive Date: 20111129
  Receipt Date: 20111121
  Transmission Date: 20120403
  Serious: Yes (Hospitalization)
  Sender: FDA-Public Use
  Company Number: US-BIOGENIDEC-2011BI044496

PATIENT
  Age: 52 Year
  Sex: Male

DRUGS (2)
  1. AMANTADINE HCL [Concomitant]
  2. AVONEX [Suspect]
     Indication: MULTIPLE SCLEROSIS
     Route: 030
     Dates: start: 20080222

REACTIONS (5)
  - ULCER [None]
  - GASTROINTESTINAL INFECTION [None]
  - GASTRIC DISORDER [None]
  - RHABDOMYOLYSIS [None]
  - DRUG HYPERSENSITIVITY [None]
